FAERS Safety Report 8159384-3 (Version None)
Quarter: 2012Q1

REPORT INFORMATION
  Report Type: 
  Country: None (occurrence: None)
  Receive Date: 20120223
  Receipt Date: 20120213
  Transmission Date: 20120608
  Serious: Yes (Hospitalization)
  Sender: FDA-Public Use
  Company Number: DK-BAXTER-2012BH004367

PATIENT
  Age: 64 Year
  Sex: Male
  Weight: 81 kg

DRUGS (32)
  1. CYCLOPHOSPHAMIDE [Suspect]
     Indication: DIFFUSE LARGE B-CELL LYMPHOMA
     Dosage: DOSAGE FORM: UNSPECIFIED
     Route: 042
     Dates: start: 20110803
  2. RITUXIMAB [Suspect]
     Dosage: DOSAGE FORM: UNSPECIFIED
     Route: 042
     Dates: start: 20110702, end: 20110702
  3. RITUXIMAB [Suspect]
     Dosage: DOSAGE FORM: UNSPECIFIED
     Route: 042
     Dates: start: 20110426
  4. DOXORUBICIN HCL [Suspect]
     Dosage: DOSAGE FORM: LIPOSOME INJECTION
     Route: 042
     Dates: start: 20110628
  5. MORPHINE SULFATE [Concomitant]
     Indication: PRODUCT USED FOR UNKNOWN INDICATION
     Dosage: DOSAGE FORM: UNSPECIFIED
     Route: 065
  6. ALLOPURINOL [Concomitant]
     Indication: PROPHYLAXIS
     Dosage: DOSAGE FORM: UNSPECIFIED
     Route: 048
     Dates: start: 20110412, end: 20110708
  7. DOXORUBICIN HCL [Suspect]
     Dosage: DOSAGE FORM: LIPOSOME INJECTION
     Route: 042
     Dates: start: 20110426
  8. AMLODIPINE [Concomitant]
     Indication: HYPERTENSION
     Dosage: DOSAGE FORM: UNSPECIFIED
     Route: 048
     Dates: start: 20110415
  9. NEUPOGEN [Suspect]
     Indication: DIFFUSE LARGE B-CELL LYMPHOMA
     Dosage: DOSAGE FORM: UNSPECIFIED
     Route: 058
     Dates: start: 20110804
  10. NEUPOGEN [Suspect]
     Dosage: DOSAGE FORM: UNSPECIFIED
     Route: 058
     Dates: start: 20110629
  11. NEUPOGEN [Suspect]
     Dosage: DOSAGE FORM: UNSPECIFIED
     Route: 058
     Dates: start: 20110427
  12. VINCRISTINE SULFATE [Suspect]
     Indication: DIFFUSE LARGE B-CELL LYMPHOMA
     Dosage: DOSAGE FORM: UNSPECIFIED
     Route: 042
     Dates: start: 20110803
  13. RITUXIMAB [Suspect]
     Indication: DIFFUSE LARGE B-CELL LYMPHOMA
     Dosage: DOSAGE FORM: UNSPECIFIED
     Route: 042
     Dates: start: 20110803
  14. MOVIPREP [Concomitant]
     Indication: CONSTIPATION
     Dosage: DOSAGE FORM: UNSPECIFIED
     Route: 065
  15. LANSOPRAZOLE [Concomitant]
     Indication: PROPHYLAXIS
     Dosage: DOSAGE FORM: UNSPECIFIED
     Route: 048
     Dates: start: 20110101
  16. CYCLOPHOSPHAMIDE [Suspect]
     Dosage: DOSAGE FORM: UNSPECIFIED
     Route: 042
     Dates: start: 20110426
  17. VINCRISTINE SULFATE [Suspect]
     Dosage: DOSAGE FORM: UNSPECIFIED
     Route: 042
     Dates: start: 20110426
  18. DOXORUBICIN HCL [Suspect]
     Indication: DIFFUSE LARGE B-CELL LYMPHOMA
     Dosage: DOSAGE FORM: LIPOSOME INJECTION
     Route: 042
     Dates: start: 20110803
  19. ACYCLOVIR [Concomitant]
     Indication: PROPHYLAXIS
     Dosage: DOSAGE FORM: UNSPECIFIED
     Route: 048
     Dates: start: 20110412
  20. LACTULOSE [Concomitant]
     Indication: CONSTIPATION
     Dosage: DOSAGE FORM: UNSPECIFIED
     Route: 048
  21. SULFAMETHOXAZOLE + TRIMETHOPRIM [Concomitant]
     Indication: PROPHYLAXIS
     Dosage: DOSAGE FORM: UNSPECIFIED
     Route: 048
     Dates: start: 20110628
  22. ENOXAPARIN SODIUM [Concomitant]
     Indication: PAIN
     Dosage: DOSAGE FORM: UNSPECIFIED
     Route: 058
     Dates: start: 20110826, end: 20120201
  23. CYCLOPHOSPHAMIDE [Suspect]
     Dosage: DOSAGE FORM: UNSPECIFIED
     Route: 042
     Dates: start: 20110628
  24. RITUXIMAB [Suspect]
     Dosage: DOSAGE FORM: UNSPECIFIED
     Route: 042
     Dates: start: 20110628
  25. FUROSEMIDE [Concomitant]
     Indication: POLYURIA
     Dosage: DOSAGE FORM: UNSPECIFIED
     Route: 048
  26. PREDNISONE TAB [Suspect]
     Indication: DIFFUSE LARGE B-CELL LYMPHOMA
     Dosage: DOSAGE FORM: UNSPECIFIED
     Route: 048
     Dates: start: 20110803
  27. PREDNISONE TAB [Suspect]
     Route: 048
     Dates: start: 20110426
  28. RITUXIMAB [Suspect]
     Dosage: DOSAGE FORM: UNSPECIFIED
     Route: 042
     Dates: start: 20110503
  29. PREDNISONE TAB [Suspect]
     Dosage: DOSAGE FORM: UNSPECIFIED
     Route: 048
     Dates: start: 20110628
  30. VINCRISTINE SULFATE [Suspect]
     Dosage: DOSAGE FORM: UNSPECIFIED
     Route: 042
     Dates: start: 20110628
  31. SENNOSIDE A+B [Concomitant]
     Indication: PRODUCT USED FOR UNKNOWN INDICATION
     Dosage: DOSAGE FORM: UNSPECIFIED
     Route: 065
  32. MORPHINE [Concomitant]
     Indication: PAIN
     Dosage: DOSAGE FORM: UNSPECIFIED
     Route: 048
     Dates: start: 20110101

REACTIONS (5)
  - PNEUMONIA [None]
  - PYREXIA [None]
  - FEBRILE NEUTROPENIA [None]
  - MUSCLE RUPTURE [None]
  - PULMONARY EMBOLISM [None]
